FAERS Safety Report 9286723 (Version 2)
Quarter: 2013Q2

REPORT INFORMATION
  Report Type: Spontaneous
  Country: DE (occurrence: None)
  Receive Date: 20130509
  Receipt Date: 20130521
  Transmission Date: 20140414
  Serious: Yes (Other)
  Sender: FDA-Public Use
  Company Number: 1305-593

PATIENT
  Sex: Female

DRUGS (1)
  1. EYLEA [Suspect]
     Indication: AGE-RELATED MACULAR DEGENERATION
     Route: 031
     Dates: start: 20130403, end: 20130403

REACTIONS (6)
  - Visual acuity reduced [None]
  - Vitreous disorder [None]
  - Inflammation [None]
  - Vitreous opacities [None]
  - Ocular hyperaemia [None]
  - Drug interaction [None]
